FAERS Safety Report 5283717-9 (Version None)
Quarter: 2007Q1

REPORT INFORMATION
  Report Type: 
  Country: None (occurrence: None)
  Receive Date: 20061226
  Receipt Date: 20060731
  Transmission Date: 20070707
  Serious: Yes (Hospitalization, Other)
  Sender: FDA-Public Use
  Company Number: WAES 0608USA00216

PATIENT
  Age: 47 Year
  Sex: Male
  Weight: 84.369 kg

DRUGS (1)
  1. ZETIA [Suspect]
     Indication: HYPERCHOLESTEROLAEMIA
     Dosage: 10MG, DAILY; PO
     Route: 048
     Dates: start: 20050501, end: 20060629

REACTIONS (1)
  - PANCREATITIS [None]
